FAERS Safety Report 8559237-2 (Version None)
Quarter: 2012Q3

REPORT INFORMATION
  Report Type: 
  Country: None (occurrence: None)
  Receive Date: 20120720
  Receipt Date: 20120704
  Transmission Date: 20120928
  Serious: Yes (Hospitalization)
  Sender: FDA-Public Use
  Company Number: AUR-APL-2012-02931

PATIENT
  Age: 18 Year
  Sex: Male

DRUGS (3)
  1. AMLODIPINE [Suspect]
     Indication: PRODUCT USED FOR UNKNOWN INDICATION
     Dosage: 30 DOSAGE FORMS, ORAL
     Route: 048
  2. FLUNARIZINE (FLUNARIZINE) [Suspect]
     Indication: PRODUCT USED FOR UNKNOWN INDICATION
     Dosage: 25 DOSAGE FORMS, ORAL
     Route: 048
  3. HYDROCHLOROTHIAZIDE [Suspect]
     Indication: PRODUCT USED FOR UNKNOWN INDICATION
     Dosage: 12 DOSAGE FORMS

REACTIONS (24)
  - PARAESTHESIA [None]
  - TROPONIN I INCREASED [None]
  - ELECTROCARDIOGRAM ST SEGMENT DEPRESSION [None]
  - ECG P WAVE INVERTED [None]
  - BLOOD CALCIUM DECREASED [None]
  - HEADACHE [None]
  - BLOOD CREATININE INCREASED [None]
  - SUPRAVENTRICULAR EXTRASYSTOLES [None]
  - ANURIA [None]
  - CARDIAC DISORDER [None]
  - POOR PERIPHERAL CIRCULATION [None]
  - BUNDLE BRANCH BLOCK LEFT [None]
  - VERTIGO [None]
  - ARRHYTHMIA SUPRAVENTRICULAR [None]
  - ATRIOVENTRICULAR BLOCK [None]
  - SUICIDE ATTEMPT [None]
  - DIZZINESS [None]
  - TOXICITY TO VARIOUS AGENTS [None]
  - MULTIPLE DRUG OVERDOSE INTENTIONAL [None]
  - HYPOTENSION [None]
  - BLOOD UREA INCREASED [None]
  - HYPERGLYCAEMIA [None]
  - ACUTE PULMONARY OEDEMA [None]
  - BLOOD LACTIC ACID INCREASED [None]
